FAERS Safety Report 9034667 (Version 1)
Quarter: 2013Q1

REPORT INFORMATION
  Report Type: Spontaneous
  Country: US (occurrence: None)
  Receive Date: 20130115
  Receipt Date: 20130115
  Transmission Date: 20140127
  Serious: No
  Sender: FDA-Public Use
  Company Number: 2012AP003563

PATIENT
  Sex: Female

DRUGS (9)
  1. APO-AZITHROMYCIN (AZITHROMYCIN) [Suspect]
     Indication: COUGH
     Dates: start: 20121018
  2. APO-AZITHROMYCIN (AZITHROMYCIN) [Suspect]
     Indication: SINUSITIS
     Dates: start: 20121018
  3. SALBUTAMOL (SALBUTAMOL) [Concomitant]
  4. TIMOPTIC (TIMOLOL MALEATE) [Concomitant]
  5. ROSUVASTATIN (ROSUVASTATIN) [Concomitant]
  6. ELTROXIN (LEVOTHYROXINE SODIUM) [Concomitant]
  7. ERGOCALCIFEROL (ERGOCALCIFEROL) [Concomitant]
  8. VITAMINS NOS (VITAMINS NOS) [Concomitant]
  9. (ANTIBIOTICS (ANTIBIOTICS) [Concomitant]

REACTIONS (2)
  - Middle ear effusion [None]
  - Deafness unilateral [None]
